FAERS Safety Report 16681600 (Version 3)
Quarter: 2020Q2

REPORT INFORMATION
  Report Type: Spontaneous
  Country: JP (occurrence: JP)
  Receive Date: 20190808
  Receipt Date: 20200413
  Transmission Date: 20200713
  Serious: Yes (Hospitalization, Other)
  Sender: FDA-Public Use
  Company Number: JP-AMGEN-JPNSP2019125335

PATIENT
  Age: 37 Year
  Sex: Female
  Weight: 25 kg

DRUGS (7)
  1. GLUCONSAN K [Concomitant]
     Active Substance: POTASSIUM GLUCONATE
     Dosage: UNK
  2. DIGOSIN [Concomitant]
     Active Substance: DIGOXIN
     Dosage: UNK
  3. PREDONINE [Concomitant]
     Active Substance: PREDNISOLONE
     Dosage: UNK
  4. CARBOCISTEINE [Concomitant]
     Active Substance: CARBOCYSTEINE
     Dosage: UNK
  5. EVENITY [Suspect]
     Active Substance: ROMOSOZUMAB-AQQG
     Indication: OSTEOPOROSIS
     Dosage: 105 MILLIGRAM
     Route: 058
     Dates: start: 20190730, end: 20190730
  6. AZOSEMIDE [Concomitant]
     Active Substance: AZOSEMIDE
     Dosage: UNK
  7. ZOPICLONE [Concomitant]
     Active Substance: ZOPICLONE
     Dosage: UNK

REACTIONS (2)
  - Off label use [Unknown]
  - Pneumothorax [Recovered/Resolved]

NARRATIVE: CASE EVENT DATE: 20190730
